FAERS Safety Report 9292756 (Version 5)
Quarter: 2013Q4

REPORT INFORMATION
  Report Type: Spontaneous
  Country: US (occurrence: US)
  Receive Date: 20130516
  Receipt Date: 20131018
  Transmission Date: 20140711
  Serious: Yes (Other)
  Sender: FDA-Public Use
  Company Number: US-PFIZER INC-2013151628

PATIENT
  Age: 63 Year
  Sex: Female
  Weight: 94.79 kg

DRUGS (16)
  1. NEURONTIN [Suspect]
     Indication: PAIN MANAGEMENT
     Dosage: 600 MG, 4X/DAY
     Route: 048
     Dates: start: 2012
  2. NEURONTIN [Suspect]
     Dosage: 300 MG, 3X/DAY
     Route: 048
     Dates: start: 2012, end: 201306
  3. NEURONTIN [Suspect]
  4. IBUPROFEN [Suspect]
     Indication: PAIN MANAGEMENT
     Dosage: UNK
  5. LEVOTHYROXINE [Concomitant]
     Dosage: UNK
  6. LOSARTAN [Concomitant]
     Dosage: UNK,1X/DAY
  7. ESTRADIOL [Concomitant]
     Dosage: UNK, 1X/DAY
  8. ACETAMINOPHEN [Concomitant]
     Dosage: 500 MG, 2X/DAY
  9. METFORMIN [Concomitant]
     Indication: DIABETES MELLITUS
     Dosage: UNK, 2X/DAY
  10. PRAVASTATIN [Concomitant]
     Dosage: UNK
  11. CYCLOBENZAPRINE [Concomitant]
     Dosage: HALF A TABLET
  12. OMEPRAZOLE [Concomitant]
     Dosage: UNK, 1X/DAY
  13. FLAXSEED OIL [Concomitant]
     Dosage: UNK
  14. VITAMIN C [Concomitant]
     Dosage: UNK
  15. VITAMIN D [Concomitant]
     Dosage: UNK
  16. VITAMIN B [Concomitant]

REACTIONS (10)
  - Off label use [Unknown]
  - Spinal cord compression [Unknown]
  - Hallucination [Unknown]
  - Blood triglycerides increased [Unknown]
  - Glycosylated haemoglobin increased [Unknown]
  - Intervertebral disc degeneration [Recovering/Resolving]
  - Gastrointestinal disorder [Unknown]
  - Drug ineffective for unapproved indication [Unknown]
  - Drug ineffective [Unknown]
  - Drug effect incomplete [Unknown]
